FAERS Safety Report 11314240 (Version 1)
Quarter: 2015Q3

REPORT INFORMATION
  Report Type: Spontaneous
  Country: US (occurrence: US)
  Receive Date: 20150727
  Receipt Date: 20150727
  Transmission Date: 20151125
  Serious: No
  Sender: FDA-Public Use
  Company Number: US-GALDERMA-US14004508

PATIENT
  Sex: Female

DRUGS (1)
  1. ADAPALENE (ADAPALENE) GEL, 0.1% [Suspect]
     Active Substance: ADAPALENE
     Indication: ACNE
     Dates: start: 201410

REACTIONS (2)
  - Drug ineffective [Unknown]
  - Acne [Unknown]

NARRATIVE: CASE EVENT DATE: 2014
